FAERS Safety Report 5469503-5 (Version None)
Quarter: 2007Q3

REPORT INFORMATION
  Report Type: 
  Country: None (occurrence: None)
  Receive Date: 20070925
  Receipt Date: 20070925
  Transmission Date: 20080115
  Serious: Yes (Life-Threatening, Hospitalization)
  Sender: FDA-Public Use
  Company Number: None

PATIENT
  Age: 22 Year
  Sex: Female
  Weight: 58.9676 kg

DRUGS (1)
  1. KARIVA [Suspect]
     Indication: MENSTRUATION IRREGULAR
     Dosage: 28 EVERY DAY PO
     Route: 048
     Dates: start: 20070729, end: 20070911

REACTIONS (2)
  - PULMONARY EMBOLISM [None]
  - THROMBOSIS [None]
